FAERS Safety Report 24116422 (Version 1)
Quarter: 2024Q3

REPORT INFORMATION
  Report Type: Spontaneous
  Country: US (occurrence: US)
  Receive Date: 20240722
  Receipt Date: 20240722
  Transmission Date: 20241017
  Serious: No
  Sender: ASTELLAS
  Company Number: US-ASTELLAS-2024US001705

PATIENT
  Age: 80 Year
  Sex: Female

DRUGS (2)
  1. MYRBETRIQ [Suspect]
     Active Substance: MIRABEGRON
     Indication: Product used for unknown indication
     Route: 065
     Dates: start: 2023
  2. IODINE [Suspect]
     Active Substance: IODINE
     Indication: Product used for unknown indication
     Dosage: UNK UNK, UNKNOWN FREQ. (PILLS)
     Route: 065

REACTIONS (3)
  - Generalised oedema [Unknown]
  - Eczema [Unknown]
  - Rash erythematous [Unknown]
